FAERS Safety Report 7345007-X (Version None)
Quarter: 2011Q1

REPORT INFORMATION
  Report Type: 
  Country: None (occurrence: None)
  Receive Date: 20110302
  Receipt Date: 20110221
  Transmission Date: 20110831
  Serious: Yes (Other)
  Sender: FDA-Public Use
  Company Number: 2011SP005538

PATIENT
  Age: 45 Year
  Sex: Male
  Weight: 121.1104 kg

DRUGS (6)
  1. DULCOLX (5 MG) [Suspect]
     Indication: COLONOSCOPY
     Dosage: 5 MG;ONCE;PO
     Route: 048
     Dates: start: 20110131
  2. TOPROL-XL [Concomitant]
  3. LISINOPRIL [Suspect]
     Indication: BLOOD PRESSURE ABNORMAL
  4. ZOCOR [Concomitant]
  5. MIRALAX [Suspect]
     Indication: COLONOSCOPY
     Dosage: 238 GM;ONCE;PO ; QD;PO
     Route: 048
     Dates: start: 20110118
  6. PLAVIX [Concomitant]

REACTIONS (5)
  - PRURITUS [None]
  - ERYTHEMA [None]
  - SWOLLEN TONGUE [None]
  - RASH GENERALISED [None]
  - TONGUE BLISTERING [None]
